FAERS Safety Report 18467899 (Version 2)
Quarter: 2021Q2

REPORT INFORMATION
  Report Type: Spontaneous
  Country: US (occurrence: US)
  Receive Date: 20201105
  Receipt Date: 20210408
  Transmission Date: 20210717
  Serious: Yes (Other)
  Sender: FDA-Public Use
  Company Number: US-VERTEX PHARMACEUTICALS-2020-021754

PATIENT
  Sex: Male
  Weight: 102.04 kg

DRUGS (6)
  1. AMITRIPTYLINE HCL [Concomitant]
     Active Substance: AMITRIPTYLINE
     Dosage: 100 MG TABLET
  2. METOPROLOL TARTRATE. [Concomitant]
     Active Substance: METOPROLOL TARTRATE
     Dosage: 100 MG TABLET
  3. AZITHROMYCIN ANHYDROUS. [Concomitant]
     Active Substance: AZITHROMYCIN ANHYDROUS
     Dosage: 250 MG TABLET
  4. ELIQUIS [Concomitant]
     Active Substance: APIXABAN
     Dosage: 5 MG TABLET
  5. KALYDECO [Suspect]
     Active Substance: IVACAFTOR
     Indication: CYSTIC FIBROSIS
     Dosage: 150 MG, QD
     Route: 048
     Dates: start: 2013
  6. ALPRAZOLAM. [Concomitant]
     Active Substance: ALPRAZOLAM
     Dosage: 0.25 MG TABLET

REACTIONS (5)
  - Pancreatitis chronic [Unknown]
  - Liver function test abnormal [Unknown]
  - Rash [Not Recovered/Not Resolved]
  - Atrial fibrillation [Unknown]
  - Diabetes mellitus [Unknown]
